FAERS Safety Report 4577695-5 (Version None)
Quarter: 2005Q1

REPORT INFORMATION
  Report Type: 
  Country: None (occurrence: None)
  Receive Date: 20050127
  Receipt Date: 20040825
  Transmission Date: 20050727
  Serious: No
  Sender: FDA-Public Use
  Company Number: USA040876485

PATIENT
  Age: 8 Year
  Sex: Male
  Weight: 32 kg

DRUGS (4)
  1. STRATTERA [Suspect]
     Dosage: 25 MG/L DAY
     Dates: start: 20040810
  2. SINGULAIR (MONTELUKAST) [Concomitant]
  3. RHINOCORT AQUA (BUDESONIDE) [Concomitant]
  4. DITROPAN (OXYBUTININ HYDROCHLORIDE) [Concomitant]

REACTIONS (1)
  - DYSPNOEA [None]
